FAERS Safety Report 6448522-6 (Version None)
Quarter: 2009Q4

REPORT INFORMATION
  Report Type: 
  Country: None (occurrence: None)
  Receive Date: 20091120
  Receipt Date: 20091117
  Transmission Date: 20100525
  Serious: Yes (Other)
  Sender: FDA-Public Use
  Company Number: US-AMGEN-US366033

PATIENT
  Sex: Female
  Weight: 91.3 kg

DRUGS (8)
  1. NPLATE [Suspect]
     Indication: IDIOPATHIC THROMBOCYTOPENIC PURPURA
     Dates: start: 20090722, end: 20091002
  2. ATENOLOL [Concomitant]
     Dates: start: 20090301
  3. SYNTHROID [Concomitant]
     Dates: start: 20090301
  4. IRON [Concomitant]
     Dates: start: 20090301
  5. VITAMIN D [Concomitant]
     Dates: start: 20090301
  6. CALCIUM [Concomitant]
     Dates: start: 20090301
  7. CENTRUM [Concomitant]
     Dates: start: 20090301
  8. FISH OIL [Concomitant]
     Dates: start: 20090301

REACTIONS (6)
  - COUGH [None]
  - DRUG INEFFECTIVE [None]
  - LEUKOCYTOSIS [None]
  - NASAL CONGESTION [None]
  - OROPHARYNGEAL PAIN [None]
  - RASH [None]
